FAERS Safety Report 19083289 (Version 2)
Quarter: 2021Q2

REPORT INFORMATION
  Report Type: Spontaneous
  Country: DE (occurrence: DE)
  Receive Date: 20210401
  Receipt Date: 20210412
  Transmission Date: 20210717
  Serious: Yes (Other)
  Sender: FDA-Public Use
  Company Number: DE-PFIZER INC-2021302473

PATIENT
  Age: 38 Year
  Sex: Female
  Weight: 72 kg

DRUGS (4)
  1. CYTOTEC [Suspect]
     Active Substance: MISOPROSTOL
     Dosage: 150 UG, 1X/DAY (50 MCG AT 9:20 AM, 50 MCG AT 1:45 PM, 50 MCG AT 5:45 PM, TRANSPLACENTAL)
     Route: 048
     Dates: start: 20150921, end: 20150921
  2. CYTOTEC [Suspect]
     Active Substance: MISOPROSTOL
     Dosage: 100 UG, 1X/DAY (50MCG AT 8:10 AM, 50MCG AT 1:25 PM)
     Route: 048
     Dates: start: 20150922, end: 20150922
  3. CYTOTEC [Suspect]
     Active Substance: MISOPROSTOL
     Indication: LABOUR INDUCTION
     Dosage: 75 UG, 1X/DAY (25MCG AT 2 P.M., 50MCG AT 9:40 P.M)
     Route: 048
     Dates: start: 20150920, end: 20150920
  4. CYTOTEC [Suspect]
     Active Substance: MISOPROSTOL
     Dosage: 325 UG, 1X/DAY (DOSAGE TEXT: 25,50,50,50,50,50,50)
     Route: 048
     Dates: start: 20150920, end: 20150923

REACTIONS (6)
  - Premature separation of placenta [Recovered/Resolved with Sequelae]
  - Amniocentesis abnormal [Unknown]
  - Uterine tachysystole [Unknown]
  - Bradycardia [Unknown]
  - Haemorrhage in pregnancy [Recovered/Resolved with Sequelae]
  - Off label use [Unknown]

NARRATIVE: CASE EVENT DATE: 201509
